FAERS Safety Report 4699911-1 (Version None)
Quarter: 2005Q2

REPORT INFORMATION
  Report Type: 
  Country: None (occurrence: None)
  Receive Date: 20050624
  Receipt Date: 20050317
  Transmission Date: 20051028
  Serious: Yes (Hospitalization)
  Sender: FDA-Public Use
  Company Number: US-MERCK-0503USA03456

PATIENT
  Sex: Male
  Weight: 114 kg

DRUGS (2)
  1. VIOXX [Suspect]
     Indication: MONARTHRITIS
     Route: 048
     Dates: start: 20010301
  2. VIOXX [Suspect]
     Route: 048
     Dates: start: 20030301, end: 20040301

REACTIONS (4)
  - GASTROOESOPHAGEAL REFLUX DISEASE [None]
  - JOINT INJURY [None]
  - MYOCARDIAL INFARCTION [None]
  - TESTICULAR DISORDER [None]
